FAERS Safety Report 9162306 (Version 2)
Quarter: 2013Q2

REPORT INFORMATION
  Report Type: Spontaneous
  Country: US (occurrence: None)
  Receive Date: 20130222
  Receipt Date: 20130506
  Transmission Date: 20140414
  Serious: Yes (Other)
  Sender: FDA-Public Use
  Company Number: CRC-13-126

PATIENT
  Age: 61 Year
  Sex: Female

DRUGS (1)
  1. ALENDRONATE SODIUM [Suspect]
     Indication: OSTEOPOROSIS
     Dosage: 1 TAB ONCE/WEEKLY
     Route: 048

REACTIONS (3)
  - Arthralgia [None]
  - Pain in extremity [None]
  - Muscle spasms [None]
